FAERS Safety Report 14073576 (Version 1)
Quarter: 2017Q4

REPORT INFORMATION
  Report Type: Spontaneous
  Country: DE (occurrence: DE)
  Receive Date: 20171011
  Receipt Date: 20171011
  Transmission Date: 20180321
  Serious: Yes (Life-Threatening)
  Sender: FDA-Public Use
  Company Number: DE-BIOCOMPATIBLES UK LTD-2017BTG01383

PATIENT
  Age: 24 Year
  Sex: Female

DRUGS (3)
  1. CARBON [Concomitant]
     Active Substance: ACTIVATED CHARCOAL
     Indication: POISONING DELIBERATE
  2. DIGIFAB [Suspect]
     Active Substance: OVINE DIGOXIN IMMUNE FAB
     Dosage: 80 MG, UNK
  3. DIGIFAB [Suspect]
     Active Substance: OVINE DIGOXIN IMMUNE FAB
     Indication: POISONING DELIBERATE
     Dosage: 80 MG, UNK

REACTIONS (2)
  - Off label use [Unknown]
  - Cardiogenic shock [Recovered/Resolved]
